FAERS Safety Report 14480049 (Version 1)
Quarter: 2018Q1

REPORT INFORMATION
  Report Type: Spontaneous
  Country: US (occurrence: US)
  Receive Date: 20180202
  Receipt Date: 20180202
  Transmission Date: 20180509
  Serious: No
  Sender: FDA-Public Use
  Company Number: US-ORPHAN EUROPE-2041285

PATIENT
  Age: 28 Year
  Sex: Female

DRUGS (2)
  1. CYSTADANE [Suspect]
     Active Substance: BETAINE
     Route: 048
  2. CYSTADANE [Suspect]
     Active Substance: BETAINE
     Indication: PRODUCT USED FOR UNKNOWN INDICATION
     Route: 048

REACTIONS (2)
  - Acne [Not Recovered/Not Resolved]
  - Intentional product misuse [Recovered/Resolved]
